FAERS Safety Report 6784480-2 (Version None)
Quarter: 2010Q2

REPORT INFORMATION
  Report Type: 
  Country: None (occurrence: None)
  Receive Date: 20100622
  Receipt Date: 20100618
  Transmission Date: 20101027
  Serious: Yes (Hospitalization)
  Sender: FDA-Public Use
  Company Number: US-GENZYME-CERZ-1001292

PATIENT

DRUGS (4)
  1. CEREZYME [Suspect]
     Indication: GAUCHER'S DISEASE
     Dosage: 30 U/KG, Q2W
     Route: 042
     Dates: start: 19990701
  2. KLONOPIN [Concomitant]
     Indication: ANXIETY
     Dosage: 1 MG, PRN
     Dates: start: 20100520
  3. TYLENOL [Concomitant]
     Indication: PAIN
     Dosage: 50 MG, PRN
  4. CALCIUM CARBONATE [Concomitant]
     Indication: SUPPLEMENTATION THERAPY
     Dosage: UNK

REACTIONS (1)
  - GASTROINTESTINAL VIRAL INFECTION [None]
